FAERS Safety Report 8605738-8 (Version None)
Quarter: 2012Q3

REPORT INFORMATION
  Report Type: 
  Country: None (occurrence: None)
  Receive Date: 20120807
  Receipt Date: 20120725
  Transmission Date: 20120928
  Serious: Yes (Hospitalization)
  Sender: FDA-Public Use
  Company Number: AUR-APL-2012-03326

PATIENT
  Age: 37 Year
  Sex: Male

DRUGS (3)
  1. NEVIRAPINE [Suspect]
     Indication: HIV INFECTION
     Dosage: ORAL
     Route: 048
  2. STAVUDINE [Concomitant]
  3. LAMIVUDINE [Concomitant]

REACTIONS (10)
  - BLOOD CREATININE INCREASED [None]
  - LIVER FUNCTION TEST ABNORMAL [None]
  - TOXIC EPIDERMAL NECROLYSIS [None]
  - BLOOD PRESSURE INCREASED [None]
  - STEVENS-JOHNSON SYNDROME [None]
  - TACHYCARDIA [None]
  - MALAISE [None]
  - ARTHRALGIA [None]
  - IRIS ADHESIONS [None]
  - DECREASED APPETITE [None]
